FAERS Safety Report 5942507-1 (Version None)
Quarter: 2008Q4

REPORT INFORMATION
  Report Type: 
  Country: None (occurrence: None)
  Receive Date: 20081105
  Receipt Date: 20081024
  Transmission Date: 20090506
  Serious: Yes (Hospitalization, Other)
  Sender: FDA-Public Use
  Company Number: US-PFIZER INC-2008090312

PATIENT
  Sex: Female
  Weight: 81.2 kg

DRUGS (3)
  1. ZITHROMAX [Suspect]
     Indication: SINUSITIS
     Dates: start: 20080401
  2. LEVAQUIN [Interacting]
     Indication: URINARY TRACT INFECTION
     Dates: start: 20080501
  3. FOLATE [Concomitant]

REACTIONS (5)
  - CARDIAC ARREST [None]
  - DRUG INTERACTION [None]
  - ELECTROCARDIOGRAM QT PROLONGED [None]
  - HYSTERECTOMY [None]
  - URINARY TRACT INFECTION [None]
